FAERS Safety Report 7625993-0 (Version None)
Quarter: 2011Q3

REPORT INFORMATION
  Report Type: 
  Country: None (occurrence: None)
  Receive Date: 20110721
  Receipt Date: 20100629
  Transmission Date: 20111222
  Serious: Yes (Other)
  Sender: FDA-Public Use
  Company Number: IN-BAXTER-2010BH017735

PATIENT
  Age: 25 Year
  Sex: Female

DRUGS (1)
  1. DEXTROSE 5% AND SODIUM CHLORIDE 0.9% IN PLASTIC CONTAINER [Suspect]
     Indication: CAESAREAN SECTION
     Route: 042
     Dates: start: 20100629, end: 20100629

REACTIONS (3)
  - CHILLS [None]
  - PYREXIA [None]
  - MATERNAL EXPOSURE DURING PREGNANCY [None]
